FAERS Safety Report 18927085 (Version 1)
Quarter: 2021Q1

REPORT INFORMATION
  Report Type: Spontaneous
  Country: US (occurrence: US)
  Receive Date: 20210222
  Receipt Date: 20210222
  Transmission Date: 20210420
  Serious: Yes (Life-Threatening, Hospitalization)
  Sender: FDA-Public Use
  Company Number: None

PATIENT
  Age: 86 Year
  Sex: Female
  Weight: 51.3 kg

DRUGS (7)
  1. PALONOSETRON. [Concomitant]
     Active Substance: PALONOSETRON HYDROCHLORIDE
     Dates: start: 20191007, end: 20210216
  2. OXALIPLATIN. [Suspect]
     Active Substance: OXALIPLATIN
     Indication: OESOPHAGEAL CARCINOMA
     Dosage: ?          OTHER FREQUENCY:EVERY 14 DAYS;?
     Route: 041
     Dates: start: 20191007, end: 20210216
  3. CINVANTI [Concomitant]
     Active Substance: APREPITANT
     Dates: start: 20191007, end: 20210216
  4. FLOUROURACIL [Concomitant]
     Active Substance: FLUOROURACIL
     Dates: start: 20191007, end: 20210216
  5. LEUCOVORIN. [Concomitant]
     Active Substance: LEUCOVORIN
     Dates: start: 20191007, end: 20210216
  6. TRASTUZUMAB. [Concomitant]
     Active Substance: TRASTUZUMAB
     Dates: start: 20191009, end: 20201221
  7. DEXAMETHASONE. [Concomitant]
     Active Substance: DEXAMETHASONE
     Dates: start: 20191007, end: 20210216

REACTIONS (5)
  - Wheezing [None]
  - Pneumonitis [None]
  - Hypoxia [None]
  - Infusion related reaction [None]
  - Interstitial lung disease [None]

NARRATIVE: CASE EVENT DATE: 20210216
